FAERS Safety Report 10672356 (Version 1)
Quarter: 2014Q4

REPORT INFORMATION
  Report Type: Report from Study
  Country: US (occurrence: US)
  Receive Date: 20141223
  Receipt Date: 20141223
  Transmission Date: 20150529
  Serious: Yes (Other)
  Sender: FDA-Public Use
  Company Number: US-SA-2014SA172715

PATIENT
  Sex: Female

DRUGS (1)
  1. LANTUS [Suspect]
     Active Substance: INSULIN GLARGINE
     Dosage: DOSE:70 UNIT(S)
     Route: 065
     Dates: end: 20141208

REACTIONS (3)
  - Drug administration error [Unknown]
  - Wheelchair user [Unknown]
  - Multiple fractures [Unknown]
